FAERS Safety Report 10070455 (Version 2)
Quarter: 2014Q2

REPORT INFORMATION
  Report Type: Spontaneous
  Country: JP (occurrence: JP)
  Receive Date: 20140410
  Receipt Date: 20140410
  Transmission Date: 20141212
  Serious: Yes (Life-Threatening, Hospitalization, Other)
  Sender: FDA-Public Use
  Company Number: JP-BAYER-2014-035690

PATIENT
  Age: 82 Year
  Sex: Male
  Weight: 62 kg

DRUGS (7)
  1. BAYASPIRIN [Suspect]
     Indication: MYOCARDIAL INFARCTION
     Dosage: 100 MG, UNK
     Route: 048
     Dates: start: 2005
  2. BAYASPIRIN [Suspect]
     Indication: ANGINA PECTORIS
  3. PARIET [Concomitant]
     Indication: PROPHYLAXIS AGAINST GASTROINTESTINAL ULCER
     Dosage: DAILY DOSE 10 MG
     Route: 048
  4. FEBUXOSTAT [Concomitant]
     Indication: HYPERURICAEMIA
     Dosage: DAILY DOSE 10 MG
     Route: 048
  5. SIGMART [Concomitant]
     Indication: ANGINA PECTORIS
     Dosage: DAILY DOSE 15 MG
  6. MAGLAX [Concomitant]
     Indication: CONSTIPATION
     Dosage: DAILY DOSE 150 MG
     Route: 048
  7. LENDORMIN [Concomitant]
     Indication: INSOMNIA
     Dosage: DAILY DOSE .25 MG
     Route: 048

REACTIONS (2)
  - Small intestinal perforation [Recovering/Resolving]
  - Gastrointestinal erosion [None]
